FAERS Safety Report 12627678 (Version 12)
Quarter: 2018Q2

REPORT INFORMATION
  Report Type: Report from Study
  Country: US (occurrence: US)
  Receive Date: 20160805
  Receipt Date: 20180515
  Transmission Date: 20180711
  Serious: Yes (Hospitalization)
  Sender: FDA-Public Use
  Company Number: PHEH2016US019573

PATIENT
  Age: 21 Year
  Sex: Male

DRUGS (1)
  1. AFINITOR [Suspect]
     Active Substance: EVEROLIMUS
     Indication: ASTROCYTOMA, LOW GRADE
     Dosage: 10 MG, QD
     Route: 048
     Dates: start: 20151102, end: 201705

REACTIONS (13)
  - Seizure [Unknown]
  - Sleep disorder [Not Recovered/Not Resolved]
  - Decreased appetite [Recovering/Resolving]
  - Oesophageal perforation [Recovering/Resolving]
  - Dysphagia [Unknown]
  - Foreign body in gastrointestinal tract [Unknown]
  - Malaise [Unknown]
  - Insomnia [Unknown]
  - Viral infection [Unknown]
  - Gastroenteritis viral [Recovering/Resolving]
  - Pyrexia [Unknown]
  - Choking [Unknown]
  - Oesophageal stenosis [Unknown]

NARRATIVE: CASE EVENT DATE: 20160815
